FAERS Safety Report 9835570 (Version 2)
Quarter: 2014Q1

REPORT INFORMATION
  Report Type: Spontaneous
  Country: US (occurrence: US)
  Receive Date: 20140122
  Receipt Date: 20140122
  Transmission Date: 20141002
  Serious: Yes (Hospitalization)
  Sender: FDA-Public Use
  Company Number: US-B.I. PHARMACEUTICALS,INC./RIDGEFIELD-2013-BI-21322BP

PATIENT
  Sex: Male
  Weight: 81.65 kg

DRUGS (12)
  1. PRADAXA [Suspect]
     Indication: ATRIAL FIBRILLATION
     Dosage: 300 MG
     Route: 048
     Dates: start: 20111111, end: 20120818
  2. CLONIDINE [Concomitant]
     Dosage: 0.1 MG
     Route: 048
     Dates: start: 201004
  3. FLOMAX [Concomitant]
     Dosage: 0.4 MG
     Route: 048
     Dates: start: 201111, end: 201302
  4. KLOR-CON [Concomitant]
     Dosage: 20 MEQ
     Route: 048
     Dates: start: 201010
  5. THEREMS M [Concomitant]
     Route: 048
  6. VITAMIN C [Concomitant]
     Dosage: 500 MG
     Route: 048
  7. ACETAMINOPHEN [Concomitant]
     Indication: PAIN
     Route: 048
  8. FERROUS SULFATE [Concomitant]
     Indication: IRON DEFICIENCY ANAEMIA
     Dosage: 325 MG
     Route: 048
     Dates: start: 201112, end: 201302
  9. FUROSEMIDE [Concomitant]
     Dosage: 20 MG
     Route: 048
     Dates: start: 201007
  10. LISINOPRIL [Concomitant]
     Dosage: 40 MG
     Route: 048
     Dates: start: 201003
  11. METOPROLOL [Concomitant]
     Dosage: 50 MG
     Route: 048
     Dates: start: 201003
  12. SIMVASTATIN [Concomitant]
     Dosage: 20 MG
     Route: 048
     Dates: start: 201003

REACTIONS (5)
  - Lower gastrointestinal haemorrhage [Recovered/Resolved]
  - Microcytic anaemia [Unknown]
  - Escherichia urinary tract infection [Unknown]
  - Streptococcal bacteraemia [Unknown]
  - Haematemesis [Unknown]
